FAERS Safety Report 25167773 (Version 9)
Quarter: 2025Q2

REPORT INFORMATION
  Report Type: Spontaneous
  Country: US (occurrence: US)
  Receive Date: 20250407
  Receipt Date: 20250609
  Transmission Date: 20250716
  Serious: Yes (Other)
  Sender: PFIZER
  Company Number: US-PFIZER INC-202500049408

PATIENT
  Age: 58 Year
  Sex: Male
  Weight: 74.84 kg

DRUGS (6)
  1. TUKYSA [Suspect]
     Active Substance: TUCATINIB
     Indication: Salivary gland cancer
     Dosage: 2 DF, 2X/DAY
  2. TUKYSA [Suspect]
     Active Substance: TUCATINIB
     Dosage: TWO 150MG TABLETS TWICE DAILY
     Route: 048
     Dates: start: 202502
  3. TUKYSA [Suspect]
     Active Substance: TUCATINIB
     Dosage: 150 MILLIGRAMS TWO TIMES A DAY
     Route: 048
  4. TRASTUZUMAB [Suspect]
     Active Substance: TRASTUZUMAB
     Indication: Salivary gland cancer
  5. XELODA [Concomitant]
     Active Substance: CAPECITABINE
     Indication: Salivary gland cancer
  6. ELIQUIS [Concomitant]
     Active Substance: APIXABAN
     Indication: Thrombosis

REACTIONS (4)
  - Salivary gland cancer [Recovering/Resolving]
  - Recurrent cancer [Unknown]
  - Off label use [Unknown]
  - Drug effective for unapproved indication [Unknown]

NARRATIVE: CASE EVENT DATE: 20250201
